FAERS Safety Report 4481855-1 (Version None)
Quarter: 2004Q4

REPORT INFORMATION
  Report Type: 
  Country: None (occurrence: None)
  Receive Date: 20041022
  Receipt Date: 20040831
  Transmission Date: 20050328
  Serious: Yes (Death)
  Sender: FDA-Public Use
  Company Number: US-AMGEN-US089415

PATIENT
  Age: 81 Year
  Sex: Male

DRUGS (1)
  1. PROCRIT [Suspect]
     Indication: ANAEMIA OF MALIGNANT DISEASE
     Route: 058
     Dates: start: 20010101, end: 20040519

REACTIONS (6)
  - CHRONIC OBSTRUCTIVE AIRWAYS DISEASE [None]
  - CONDITION AGGRAVATED [None]
  - PNEUMONIA [None]
  - SEPSIS [None]
  - STREPTOCOCCAL INFECTION [None]
  - WEIGHT DECREASED [None]
